FAERS Safety Report 10563702 (Version 1)
Quarter: 2014Q4

REPORT INFORMATION
  Report Type: Spontaneous
  Country: US (occurrence: None)
  Receive Date: 20141103
  Receipt Date: 20141103
  Transmission Date: 20150529
  Serious: No
  Sender: FDA-Public Use
  Company Number: None

PATIENT
  Age: 27 Year
  Sex: Male
  Weight: 77.11 kg

DRUGS (1)
  1. NORCO [Suspect]
     Active Substance: ACETAMINOPHEN\HYDROCODONE BITARTRATE
     Indication: BACK PAIN
     Dosage: 1 TABLET, AS NEEDED TAKEN BY MOUTH.
     Dates: start: 20141028, end: 20141101

REACTIONS (3)
  - Product quality issue [None]
  - Product counterfeit [None]
  - Drug ineffective [None]

NARRATIVE: CASE EVENT DATE: 20141028
